FAERS Safety Report 9538061 (Version 1)
Quarter: 2013Q3

REPORT INFORMATION
  Report Type: Spontaneous
  Country: DE (occurrence: DE)
  Receive Date: 20130920
  Receipt Date: 20130920
  Transmission Date: 20140515
  Serious: Yes (Other)
  Sender: FDA-Public Use
  Company Number: DE-AMGEN-DEUSP2013065042

PATIENT
  Age: 76 Year
  Sex: Male

DRUGS (4)
  1. XGEVA [Suspect]
     Indication: METASTASES TO BONE
     Dosage: UNK
     Route: 065
  2. BUSERELIN [Concomitant]
     Route: 065
  3. METFORMIN [Concomitant]
     Route: 065
  4. ASS [Concomitant]
     Route: 065

REACTIONS (1)
  - Connective tissue disorder [Unknown]
